FAERS Safety Report 8312105-3 (Version None)
Quarter: 2012Q2

REPORT INFORMATION
  Report Type: 
  Country: None (occurrence: None)
  Receive Date: 20120425
  Receipt Date: 20121230
  Transmission Date: 20120825
  Serious: No
  Sender: FDA-Public Use
  Company Number: US-MYLANLABS-2012S1000189

PATIENT
  Sex: Female

DRUGS (2)
  1. PANTOPRAZOLE SODIUM [Suspect]
     Indication: GASTROOESOPHAGEAL REFLUX DISEASE
     Route: 048
     Dates: start: 20111201, end: 20111201
  2. PANTOPRAZOLE SODIUM [Suspect]

REACTIONS (3)
  - DRUG INEFFECTIVE [None]
  - GASTROOESOPHAGEAL REFLUX DISEASE [None]
  - MALAISE [None]
